FAERS Safety Report 23972375 (Version 1)
Quarter: 2024Q2

REPORT INFORMATION
  Report Type: Spontaneous
  Country: US (occurrence: US)
  Receive Date: 20240613
  Receipt Date: 20240613
  Transmission Date: 20240716
  Serious: No
  Sender: FDA-Public Use
  Company Number: US-SA-SAC20240606000892

PATIENT
  Sex: Male
  Weight: 60 kg

DRUGS (1)
  1. DUPIXENT [Suspect]
     Active Substance: DUPILUMAB
     Indication: Dermatitis atopic
     Dosage: 200 MG, QOW
     Route: 058

REACTIONS (1)
  - Product prescribing issue [Unknown]
